FAERS Safety Report 21825039 (Version 1)
Quarter: 2023Q1

REPORT INFORMATION
  Report Type: Spontaneous
  Country: AT (occurrence: AT)
  Receive Date: 20230105
  Receipt Date: 20230105
  Transmission Date: 20230417
  Serious: Yes (Death, Hospitalization)
  Sender: FDA-Public Use
  Company Number: AT-TEVA-2022-AT-2842189

PATIENT
  Age: 73 Year
  Sex: Female

DRUGS (10)
  1. DEXAMETHASONE [Suspect]
     Active Substance: DEXAMETHASONE
     Indication: Encephalitis autoimmune
     Dosage: 40 MILLIGRAM DAILY;
     Route: 065
     Dates: start: 2016
  2. CARBOPLATIN [Suspect]
     Active Substance: CARBOPLATIN
     Indication: Bladder transitional cell carcinoma
     Route: 065
     Dates: start: 201508, end: 201604
  3. GEMCITABINE [Suspect]
     Active Substance: GEMCITABINE
     Indication: Bladder transitional cell carcinoma
     Route: 065
     Dates: start: 201508, end: 201604
  4. PEMBROLIZUMAB [Suspect]
     Active Substance: PEMBROLIZUMAB
     Indication: Metastatic carcinoma of the bladder
     Route: 065
     Dates: start: 201609
  5. SULTAMICILLIN [Concomitant]
     Active Substance: SULTAMICILLIN
     Indication: Evidence based treatment
     Dosage: 1500 MILLIGRAM DAILY;
     Route: 065
     Dates: start: 2016
  6. VALACYCLOVIR [Concomitant]
     Active Substance: VALACYCLOVIR HYDROCHLORIDE
     Indication: Genital herpes
     Dosage: 2 GRAM DAILY;
     Route: 065
     Dates: start: 2016
  7. NALOXONE [Concomitant]
     Active Substance: NALOXONE
     Indication: Product used for unknown indication
     Route: 065
     Dates: start: 2016
  8. CEFTRIAXONE [Concomitant]
     Active Substance: CEFTRIAXONE
     Indication: Anti-infective therapy
     Dosage: 4 GRAM DAILY;
     Route: 065
     Dates: start: 2016
  9. AMPICILLIN SODIUM\SULBACTAM SODIUM [Concomitant]
     Active Substance: AMPICILLIN SODIUM\SULBACTAM SODIUM
     Indication: Anti-infective therapy
     Dosage: 9 GRAM DAILY;
     Route: 065
     Dates: start: 2016
  10. ACYCLOVIR [Concomitant]
     Active Substance: ACYCLOVIR
     Indication: Anti-infective therapy
     Dosage: 1800 MILLIGRAM DAILY;
     Route: 065
     Dates: start: 2016

REACTIONS (3)
  - Encephalitis autoimmune [Fatal]
  - Drug ineffective [Fatal]
  - Hypernatraemia [Unknown]
